FAERS Safety Report 21063141 (Version 2)
Quarter: 2022Q3

REPORT INFORMATION
  Report Type: Spontaneous
  Country: BR (occurrence: BR)
  Receive Date: 20220711
  Receipt Date: 20220810
  Transmission Date: 20221027
  Serious: Yes (Other)
  Sender: FDA-Public Use
  Company Number: BR-SUN PHARMACEUTICAL INDUSTRIES LTD-2022R1-343776

PATIENT
  Age: 52 Year
  Sex: Female

DRUGS (8)
  1. METHYLPREDNISOLONE [Suspect]
     Active Substance: METHYLPREDNISOLONE
     Indication: Papillitis
     Dosage: 15 MILLIGRAM/KILOGRAM, DAILY
     Route: 042
  2. METHYLPREDNISOLONE [Suspect]
     Active Substance: METHYLPREDNISOLONE
     Indication: Toxoplasmosis
  3. METHYLPREDNISOLONE [Suspect]
     Active Substance: METHYLPREDNISOLONE
     Indication: Choroiditis
  4. PREDNISONE [Suspect]
     Active Substance: PREDNISONE
     Indication: Papillitis
     Dosage: 40 MILLIGRAM, DAILY
     Route: 048
     Dates: start: 20191219, end: 20200219
  5. PREDNISONE [Suspect]
     Active Substance: PREDNISONE
     Indication: Toxoplasmosis
  6. PREDNISONE [Suspect]
     Active Substance: PREDNISONE
     Indication: Choroiditis
  7. PYRIMETHAMINE [Concomitant]
     Active Substance: PYRIMETHAMINE
     Indication: Eye infection toxoplasmal
     Dosage: 50 MILLIGRAM, DAILY
     Route: 065
     Dates: start: 20191219, end: 20200219
  8. SULFADIAZINE [Concomitant]
     Active Substance: SULFADIAZINE
     Indication: Eye infection toxoplasmal
     Dosage: 4 GRAM, DAILY
     Route: 065
     Dates: start: 20191219, end: 20200219

REACTIONS (2)
  - Disease progression [Unknown]
  - Abdominal discomfort [Recovering/Resolving]

NARRATIVE: CASE EVENT DATE: 20201215
